FAERS Safety Report 18176437 (Version 2)
Quarter: 2020Q3

REPORT INFORMATION
  Report Type: Report from Study
  Country: CA (occurrence: CA)
  Receive Date: 20200820
  Receipt Date: 20200917
  Transmission Date: 20201103
  Serious: Yes (Death, Hospitalization, Other)
  Sender: FDA-Public Use
  Company Number: CA-HLS-202000879

PATIENT
  Age: 73 Year
  Sex: Male
  Weight: 74 kg

DRUGS (28)
  1. CLOZARIL [Suspect]
     Active Substance: CLOZAPINE
     Indication: PSYCHOTIC DISORDER
     Route: 048
     Dates: start: 20140611, end: 20200817
  2. LACTULOSE. [Concomitant]
     Active Substance: LACTULOSE
     Indication: CONSTIPATION
     Dosage: 667 MG/ML, 30 MLS DAILY
     Route: 048
  3. ASA [Concomitant]
     Active Substance: ASPIRIN
     Route: 065
  4. TAMSULOSIN [Concomitant]
     Active Substance: TAMSULOSIN
     Indication: BENIGN PROSTATIC HYPERPLASIA
     Dosage: AT BEDTIME
     Route: 048
  5. BENOPROTEIN [Concomitant]
     Dosage: 1 SCOOP
     Route: 065
  6. DIASTAT RECTAL GEL [Concomitant]
     Indication: SEIZURE
     Dosage: 10 MG/2 ML
     Route: 054
  7. DILAUDID [Concomitant]
     Active Substance: HYDROMORPHONE HYDROCHLORIDE
     Route: 058
     Dates: end: 20200806
  8. VITAMIN D [Concomitant]
     Active Substance: VITAMIN D NOS
     Indication: VITAMIN D DEFICIENCY
     Route: 048
  9. BISACODYL. [Concomitant]
     Active Substance: BISACODYL
     Route: 054
  10. ABENOL [Concomitant]
     Active Substance: ACETAMINOPHEN
     Indication: PAIN
     Route: 054
  11. PALAFER [Concomitant]
     Active Substance: FERROUS FUMARATE
     Dosage: 5 MLS (300MG) AT BEDTIME
     Route: 048
  12. DEPAKENE [Concomitant]
     Active Substance: VALPROIC ACID
     Indication: SEIZURE
     Dosage: 50 MG/ML ?25 ML BY MOUTH IN MORNING AN D20 ML BY MOUTH IN THE EVENING
     Route: 048
  13. ABENOL [Concomitant]
     Active Substance: ACETAMINOPHEN
     Indication: PAIN
     Dosage: AS REQUIRED
     Route: 048
  14. CLOZARIL [Suspect]
     Active Substance: CLOZAPINE
     Indication: PSYCHOTIC DISORDER
     Dosage: AT BEDTIME
     Route: 065
     Dates: end: 20200810
  15. LANSOPRAZOLE. [Concomitant]
     Active Substance: LANSOPRAZOLE
     Indication: EROSIVE OESOPHAGITIS
     Route: 048
  16. XARELTO [Concomitant]
     Active Substance: RIVAROXABAN
     Indication: DEEP VEIN THROMBOSIS
     Route: 048
  17. AIROMIR/VENTOLIN 200 DOS [Concomitant]
     Dosage: 2 PUFF EVERY 6 HOURS + PRN
     Route: 065
  18. HALDOL [Concomitant]
     Active Substance: HALOPERIDOL
     Indication: AGITATION
     Dosage: 0.1 ML INTRAMUSCULAR/ SUBCUTANEOUSLY
     Route: 065
  19. CLOZARIL [Suspect]
     Active Substance: CLOZAPINE
     Indication: SCHIZOAFFECTIVE DISORDER
     Route: 048
     Dates: start: 20140611, end: 20200817
  20. CLOZARIL [Suspect]
     Active Substance: CLOZAPINE
     Indication: SCHIZOAFFECTIVE DISORDER
     Dosage: AT BEDTIME
     Route: 065
     Dates: end: 20200810
  21. FINASTERIDE. [Concomitant]
     Active Substance: FINASTERIDE
     Route: 048
  22. LANSOPRAZOLE. [Concomitant]
     Active Substance: LANSOPRAZOLE
     Indication: GASTROOESOPHAGEAL REFLUX DISEASE
     Route: 048
  23. PROLIA [Concomitant]
     Active Substance: DENOSUMAB
     Dosage: 60MG/ML INJECTION
     Route: 058
  24. EPINEPHRINE. [Concomitant]
     Active Substance: EPINEPHRINE
     Indication: ANAPHYLACTIC REACTION
     Route: 030
  25. TAMIFLU [Concomitant]
     Active Substance: OSELTAMIVIR PHOSPHATE
     Indication: PROPHYLAXIS
     Route: 048
  26. METOPROLOL. [Concomitant]
     Active Substance: METOPROLOL
     Indication: HYPERTENSION
     Dosage: 1/4 DAILY
     Route: 048
  27. QUETIAPINE. [Concomitant]
     Active Substance: QUETIAPINE
     Indication: PSYCHOTIC DISORDER
     Dosage: 25 MG BY MOUTH AT 0600 AND 2 TABLETS (50 MG) AT 1600 HOURS PRN
     Route: 065
  28. QUETIAPINE. [Concomitant]
     Active Substance: QUETIAPINE
     Indication: PSYCHOTIC DISORDER
     Route: 065

REACTIONS (4)
  - Pleural effusion [Unknown]
  - Pneumonia [Unknown]
  - Pneumonia aspiration [Fatal]
  - Respiratory syncytial virus bronchiolitis [Unknown]

NARRATIVE: CASE EVENT DATE: 201805
